FAERS Safety Report 7352639-1 (Version None)
Quarter: 2011Q1

REPORT INFORMATION
  Report Type: 
  Country: None (occurrence: None)
  Receive Date: 20110315
  Receipt Date: 20110223
  Transmission Date: 20110831
  Serious: Yes (Other)
  Sender: FDA-Public Use
  Company Number: US-BAYER-200940929NA

PATIENT
  Sex: Female

DRUGS (2)
  1. TRASYLOL [Suspect]
     Indication: AORTIC VALVE REPLACEMENT
     Dosage: UNK
     Dates: start: 19970721
  2. TRASYLOL [Suspect]
     Indication: CORONARY ARTERY BYPASS

REACTIONS (11)
  - MULTI-ORGAN FAILURE [None]
  - RENAL INJURY [None]
  - UNEVALUABLE EVENT [None]
  - FEAR [None]
  - DISABILITY [None]
  - ANXIETY [None]
  - ANHEDONIA [None]
  - PAIN [None]
  - DEPRESSION [None]
  - RENAL FAILURE [None]
  - INJURY [None]
